FAERS Safety Report 10079839 (Version 5)
Quarter: 2014Q2

REPORT INFORMATION
  Report Type: Spontaneous
  Country: FR (occurrence: FR)
  Receive Date: 20140415
  Receipt Date: 20140617
  Transmission Date: 20141212
  Serious: Yes (Disabling, Other)
  Sender: FDA-Public Use
  Company Number: FR-ASTRAZENECA-2014SE25462

PATIENT
  Age: 607 Month
  Sex: Female

DRUGS (8)
  1. XEROQUEL [Suspect]
     Indication: BIPOLAR DISORDER
     Route: 048
     Dates: start: 20131212, end: 20140117
  2. XEROQUEL [Interacting]
     Indication: BIPOLAR DISORDER
     Route: 048
     Dates: start: 20140118, end: 20140318
  3. EPITOMAX [Interacting]
     Indication: BIPOLAR DISORDER
     Route: 048
     Dates: start: 20130318
  4. EPITOMAX [Interacting]
     Indication: BIPOLAR DISORDER
     Route: 048
     Dates: start: 20140403
  5. MARSILID [Concomitant]
  6. RASILEZ [Concomitant]
  7. ALPRAZOLAM [Concomitant]
  8. EZETROL [Concomitant]

REACTIONS (20)
  - Drug interaction [Not Recovered/Not Resolved]
  - Infected fistula [Unknown]
  - Cellulitis [Unknown]
  - Drug withdrawal syndrome [Not Recovered/Not Resolved]
  - Dizziness [Not Recovered/Not Resolved]
  - Vision blurred [Not Recovered/Not Resolved]
  - Heterophoria [Not Recovered/Not Resolved]
  - Balance disorder [Unknown]
  - Migraine [Unknown]
  - Nausea [Unknown]
  - Paraesthesia [Unknown]
  - Vomiting [Unknown]
  - Headache [Unknown]
  - Dry mouth [Unknown]
  - Orthostatic hypotension [Unknown]
  - Irritability [Unknown]
  - Insomnia [Unknown]
  - Abnormal dreams [Unknown]
  - Nightmare [Unknown]
  - Drug ineffective [Not Recovered/Not Resolved]
